FAERS Safety Report 21394904 (Version 1)
Quarter: 2022Q3

REPORT INFORMATION
  Report Type: Spontaneous
  Country: DE (occurrence: DE)
  Receive Date: 20220930
  Receipt Date: 20220930
  Transmission Date: 20221027
  Serious: Yes (Hospitalization, Other)
  Sender: FDA-Public Use
  Company Number: DE-ADRED-05785-01

PATIENT
  Age: 70 Year
  Sex: Male
  Weight: 95 kg

DRUGS (9)
  1. ASPIRIN [Suspect]
     Active Substance: ASPIRIN
     Indication: Product used for unknown indication
     Dosage: 1 DOSAGE FORMS DAILY; 100 MG, 1-0-0-0, UNIT DOSE : 1 DF , FREQUENCY : OD
     Route: 065
  2. METFORMIN [Suspect]
     Active Substance: METFORMIN HYDROCHLORIDE
     Indication: Product used for unknown indication
     Route: 065
  3. CLOPIDOGREL [Suspect]
     Active Substance: CLOPIDOGREL BISULFATE
     Indication: Product used for unknown indication
     Dosage: 1 DOSAGE FORMS DAILY; 75 MG, 1-0-0-0, UNIT DOSE : 1 DF , FREQUENCY : OD
     Route: 065
  4. ATACAND [Suspect]
     Active Substance: CANDESARTAN CILEXETIL
     Indication: Product used for unknown indication
     Dosage: 1 DOSAGE FORMS DAILY; 8 MG, 1-0-0-0, UNIT DOSE : 1 DF , FREQUENCY : OD, STRENGTH : 8 MG
  5. TORSEMIDE [Suspect]
     Active Substance: TORSEMIDE
     Indication: Product used for unknown indication
     Dosage: 1 DOSAGE FORMS DAILY; 10 MG, 1-0-0-0, STRENGTH : 10 MG, UNIT DOSE : 1 DF , FREQUENCY : OD
  6. JANUVIA [Suspect]
     Active Substance: SITAGLIPTIN PHOSPHATE
     Indication: Product used for unknown indication
     Dosage: 1 DOSAGE FORMS DAILY; 50 MG, 1-0-0-0,UNIT DOSE : 1 DF , FREQUENCY : OD, STRENGTH : 50 MG
  7. PANTOPRAZOLE [Concomitant]
     Active Substance: PANTOPRAZOLE
     Indication: Product used for unknown indication
     Dosage: 1 DOSAGE FORMS DAILY; 40 MG, 1-0-0-0, UNIT DOSE : 1 DF , FREQUENCY : OD
  8. BISOPROLOL FUMARATE [Concomitant]
     Active Substance: BISOPROLOL FUMARATE
     Indication: Product used for unknown indication
     Dosage: 1 DOSAGE FORMS DAILY; 1.25 MG, 1-0-0-0, UNIT DOSE : 1 DF , FREQUENCY : OD, STRENGTH : 1.25 MG
  9. ATORVASTATIN CALCIUM [Concomitant]
     Active Substance: ATORVASTATIN CALCIUM
     Indication: Product used for unknown indication
     Dosage: .5 DOSAGE FORMS DAILY; 80 MG, 0-0-0.5-0, STRENGTH : 80 MG, UNIT DOSE : 0.5 DF , FREQUENCY : OD

REACTIONS (7)
  - Dyspepsia [Unknown]
  - Dyspepsia [Unknown]
  - Melaena [Unknown]
  - Dizziness [Unknown]
  - Upper gastrointestinal haemorrhage [Unknown]
  - Haematochezia [Unknown]
  - Abdominal pain lower [Unknown]
